FAERS Safety Report 9915953 (Version 1)
Quarter: 2014Q1

REPORT INFORMATION
  Report Type: Spontaneous
  Country: US (occurrence: None)
  Receive Date: 20140219
  Receipt Date: 20140219
  Transmission Date: 20141002
  Serious: Yes (Other)
  Sender: FDA-Public Use
  Company Number: 001669838A

PATIENT
  Age: 44 Year
  Sex: Female

DRUGS (1)
  1. VITACLEAR [Suspect]
     Route: 048
     Dates: start: 20131120

REACTIONS (3)
  - Agitation [None]
  - Heart rate increased [None]
  - Drug screen positive [None]
